FAERS Safety Report 6375883-9 (Version None)
Quarter: 2009Q3

REPORT INFORMATION
  Report Type: 
  Country: None (occurrence: None)
  Receive Date: 20090924
  Receipt Date: 20090917
  Transmission Date: 20100115
  Serious: No
  Sender: FDA-Public Use
  Company Number: US-B.I. PHARMACEUTICALS,INC./RIDGEFIELD-2009-BP-10945BP

PATIENT
  Age: 50 Year
  Sex: Male

DRUGS (3)
  1. APTIVUS/RITONAVIR CAPSULES [Suspect]
     Indication: HIV INFECTION
     Route: 048
     Dates: start: 20070101
  2. NORVAIR [Concomitant]
     Indication: HIV INFECTION
  3. TRAVATA [Concomitant]
     Indication: HIV INFECTION

REACTIONS (1)
  - DIARRHOEA [None]
